FAERS Safety Report 10550808 (Version 3)
Quarter: 2015Q1

REPORT INFORMATION
  Report Type: Spontaneous
  Country: IE (occurrence: IE)
  Receive Date: 20141029
  Receipt Date: 20150112
  Transmission Date: 20150720
  Serious: Yes (Other)
  Sender: FDA-Public Use
  Company Number: PHFR2014IE007235

PATIENT
  Age: 46 Year
  Sex: Female
  Weight: 68 kg

DRUGS (2)
  1. PANTOPRAZOLE [Concomitant]
     Active Substance: PANTOPRAZOLE SODIUM
     Indication: DUODENAL ULCER
     Dosage: 40 MG, QD
     Route: 048
  2. CLOZARIL [Suspect]
     Active Substance: CLOZAPINE
     Indication: SCHIZOPHRENIA
     Dosage: UNK
     Route: 048
     Dates: start: 20100608

REACTIONS (3)
  - Irritable bowel syndrome [Not Recovered/Not Resolved]
  - Haemoglobin decreased [Recovered/Resolved]
  - Kidney infection [Recovered/Resolved]

NARRATIVE: CASE EVENT DATE: 20141020
